FAERS Safety Report 9261710 (Version 1)
Quarter: 2013Q2

REPORT INFORMATION
  Report Type: Spontaneous
  Country: US (occurrence: US)
  Receive Date: 20130429
  Receipt Date: 20130429
  Transmission Date: 20140414
  Serious: Yes (Other)
  Sender: FDA-Public Use
  Company Number: US-BRISTOL-MYERS SQUIBB COMPANY-18817593

PATIENT
  Age: 53 Year
  Sex: Male
  Weight: 102.04 kg

DRUGS (1)
  1. SPRYCEL [Suspect]
     Dates: start: 20130406

REACTIONS (4)
  - Loss of consciousness [Unknown]
  - Headache [Unknown]
  - Tremor [Unknown]
  - Muscle spasms [Unknown]
